FAERS Safety Report 14568626 (Version 1)
Quarter: 2018Q1

REPORT INFORMATION
  Report Type: Spontaneous
  Country: US (occurrence: US)
  Receive Date: 20180223
  Receipt Date: 20180223
  Transmission Date: 20180509
  Serious: Yes (Other)
  Sender: FDA-Public Use
  Company Number: PHEH2018US006232

PATIENT
  Sex: Male

DRUGS (4)
  1. XGEVA [Suspect]
     Active Substance: DENOSUMAB
     Indication: MUSCULOSKELETAL DISORDER
     Dosage: UNK
     Route: 065
     Dates: start: 20140206
  2. XALKORI [Suspect]
     Active Substance: CRIZOTINIB
     Dosage: 250 MG, QD
     Route: 065
     Dates: start: 20140320, end: 20140410
  3. CARBOPLATIN FOR INJECTION [Suspect]
     Active Substance: CARBOPLATIN
     Indication: PRODUCT USED FOR UNKNOWN INDICATION
     Dosage: UNK UNK, CYCLIC
     Route: 065
     Dates: start: 20131114, end: 20131226
  4. XALKORI [Suspect]
     Active Substance: CRIZOTINIB
     Indication: PRODUCT USED FOR UNKNOWN INDICATION
     Dosage: 250 MG, BID
     Route: 065
     Dates: start: 20140101, end: 20140224

REACTIONS (7)
  - Adenocarcinoma [Unknown]
  - Blood creatine increased [Unknown]
  - Osteolysis [Unknown]
  - Pleural thickening [Unknown]
  - Liver function test increased [Unknown]
  - Skin lesion [Unknown]
  - Lymphadenopathy [Unknown]

NARRATIVE: CASE EVENT DATE: 20170321
